FAERS Safety Report 21005381 (Version 3)
Quarter: 2022Q3

REPORT INFORMATION
  Report Type: Spontaneous
  Country: US (occurrence: US)
  Receive Date: 20220624
  Receipt Date: 20220712
  Transmission Date: 20221027
  Serious: No
  Sender: FDA-Public Use
  Company Number: US-PFIZER INC-202200869018

PATIENT
  Age: 79 Year
  Sex: Female
  Weight: 74.84 kg

DRUGS (11)
  1. PAXLOVID [Suspect]
     Active Substance: NIRMATRELVIR\RITONAVIR
     Indication: COVID-19 treatment
     Dosage: [PF-07321332 300 MG]/[RITONAVIR 100 MG]
     Dates: start: 20220619, end: 20220620
  2. PAXLOVID [Suspect]
     Active Substance: NIRMATRELVIR\RITONAVIR
     Dosage: [PF-07321332 150 MG]/[RITONAVIR 100 MG]; 2X/DAY;
     Dates: start: 20220621, end: 20220623
  3. REPATHA [Concomitant]
     Active Substance: EVOLOCUMAB
     Dosage: UNK (ONE TIME. TAKE 2X A MONTH)
     Dates: start: 20220623
  4. ASPIRIN [Concomitant]
     Active Substance: ASPIRIN
     Dosage: 81 MG, 1X/DAY
  5. PROPRANOLOL [Concomitant]
     Active Substance: PROPRANOLOL HYDROCHLORIDE
     Dosage: 20 MG, 1X/DAY
  6. HYDROCHLOROTHIAZIDE\LISINOPRIL [Concomitant]
     Active Substance: HYDROCHLOROTHIAZIDE\LISINOPRIL
     Dosage: UNK, 1X/DAY (20/25MG)
  7. OMEPRAZOLE [Concomitant]
     Active Substance: OMEPRAZOLE
     Dosage: 20 MG, 1X/DAY
  8. LEVOTHYROXINE [Concomitant]
     Active Substance: LEVOTHYROXINE
     Dosage: 75 UG, 1X/DAY
  9. TYLENOL [Concomitant]
     Active Substance: ACETAMINOPHEN
     Dosage: 650 MG, 4X/DAY
  10. TRAMADOL [Concomitant]
     Active Substance: TRAMADOL
     Dosage: 50 MG, 1X/DAY (TAKE 1/2)
  11. DORZOLAMIDE [Concomitant]
     Active Substance: DORZOLAMIDE
     Dosage: (ON RIGHT EYE)

REACTIONS (3)
  - Product prescribing error [Unknown]
  - COVID-19 [Unknown]
  - Disease recurrence [Unknown]

NARRATIVE: CASE EVENT DATE: 20220619
